FAERS Safety Report 23614302 (Version 2)
Quarter: 2024Q1

REPORT INFORMATION
  Report Type: Report from Study
  Country: US (occurrence: US)
  Receive Date: 20240311
  Receipt Date: 20240331
  Transmission Date: 20240410
  Serious: Yes (Other)
  Sender: FDA-Public Use
  Company Number: US-ABBVIE-5669222

PATIENT
  Sex: Male

DRUGS (1)
  1. VENCLEXTA [Suspect]
     Active Substance: VENETOCLAX
     Indication: Chronic lymphocytic leukaemia
     Dosage: 100 MG
     Route: 048
     Dates: start: 20240214

REACTIONS (2)
  - Lung neoplasm malignant [Unknown]
  - Chest pain [Unknown]

NARRATIVE: CASE EVENT DATE: 20240101
